FAERS Safety Report 14390093 (Version 2)
Quarter: 2018Q1

REPORT INFORMATION
  Report Type: Spontaneous
  Country: US (occurrence: US)
  Receive Date: 20180115
  Receipt Date: 20180319
  Transmission Date: 20180509
  Serious: No
  Sender: FDA-Public Use
  Company Number: US-ASTRAZENECA-2018SE04436

PATIENT
  Age: 70 Year
  Sex: Male
  Weight: 88 kg

DRUGS (5)
  1. ANTI-ITCH CREAM [Concomitant]
     Active Substance: UNSPECIFIED INGREDIENT
  2. BYDUREON [Suspect]
     Active Substance: EXENATIDE
     Indication: BLOOD GLUCOSE ABNORMAL
     Route: 058
     Dates: start: 2017
  3. ZOCOR [Concomitant]
     Active Substance: SIMVASTATIN
  4. CRESTOR [Suspect]
     Active Substance: ROSUVASTATIN CALCIUM
     Indication: BLOOD CHOLESTEROL INCREASED
     Dosage: MG
     Route: 048
  5. BABY ASPIRIN [Concomitant]
     Active Substance: ASPIRIN

REACTIONS (15)
  - Pain [Recovered/Resolved]
  - Injection site mass [Recovering/Resolving]
  - Feeling abnormal [Recovered/Resolved]
  - Heart rate increased [Recovered/Resolved]
  - Drug dose omission [Not Recovered/Not Resolved]
  - Blood glucose increased [Unknown]
  - Paraesthesia [Recovered/Resolved]
  - Weight decreased [Unknown]
  - Injection site pruritus [Recovered/Resolved]
  - Device issue [Unknown]
  - Appetite disorder [Not Recovered/Not Resolved]
  - Eating disorder [Not Recovered/Not Resolved]
  - Dyspnoea [Recovered/Resolved]
  - Blood pressure increased [Recovered/Resolved]
  - Memory impairment [Not Recovered/Not Resolved]

NARRATIVE: CASE EVENT DATE: 2017
